FAERS Safety Report 4856902-5 (Version None)
Quarter: 2005Q4

REPORT INFORMATION
  Report Type: 
  Country: None (occurrence: None)
  Receive Date: 20051219
  Receipt Date: 20050203
  Transmission Date: 20060501
  Serious: No
  Sender: FDA-Public Use
  Company Number: US-GLAXOSMITHKLINE-A0543679A

PATIENT
  Age: 60 Year
  Sex: Female

DRUGS (2)
  1. NICODERM CQ [Suspect]
     Dates: start: 20050124
  2. NICODERM CQ [Suspect]
     Dates: start: 20050110, end: 20050123

REACTIONS (3)
  - FEELING JITTERY [None]
  - MOUTH INJURY [None]
  - NIGHTMARE [None]
